FAERS Safety Report 19648026 (Version 1)
Quarter: 2021Q3

REPORT INFORMATION
  Report Type: Spontaneous
  Country: US (occurrence: US)
  Receive Date: 20210803
  Receipt Date: 20210803
  Transmission Date: 20211014
  Serious: Yes (Hospitalization, Other)
  Sender: FDA-Public Use
  Company Number: US-DRREDDYS-LIT/USA/21/0138309

PATIENT
  Age: 26 Year
  Sex: Female
  Weight: 105 kg

DRUGS (21)
  1. NOREPINEPHRINE. [Suspect]
     Active Substance: NOREPINEPHRINE
     Indication: PRODUCT USED FOR UNKNOWN INDICATION
  2. SALBUTAMOL [Concomitant]
     Active Substance: ALBUTEROL
     Indication: PRODUCT USED FOR UNKNOWN INDICATION
  3. PROPOFOL INJECTABLE EMULSION [Suspect]
     Active Substance: PROPOFOL
     Indication: SEDATION
     Route: 042
  4. FENTANYL CITRATE. [Suspect]
     Active Substance: FENTANYL CITRATE
     Indication: SEDATION
     Route: 042
  5. GUAIFENESIN. [Suspect]
     Active Substance: GUAIFENESIN
     Indication: WHEEZING
     Route: 048
  6. SERTRALINE [Concomitant]
     Active Substance: SERTRALINE HYDROCHLORIDE
     Indication: PRODUCT USED FOR UNKNOWN INDICATION
  7. ALBUTEROL. [Concomitant]
     Active Substance: ALBUTEROL
     Indication: PRODUCT USED FOR UNKNOWN INDICATION
  8. FUROSEMIDE. [Suspect]
     Active Substance: FUROSEMIDE
     Indication: POLYURIA
     Route: 042
  9. AZITHROMYCIN ANHYDROUS. [Suspect]
     Active Substance: AZITHROMYCIN ANHYDROUS
     Indication: ANTIBIOTIC PROPHYLAXIS
     Route: 048
  10. DOPAMINE [Suspect]
     Active Substance: DOPAMINE HYDROCHLORIDE
     Indication: CARDIAC ARREST
     Route: 042
  11. FOLIC ACID. [Concomitant]
     Active Substance: FOLIC ACID
     Indication: PRODUCT USED FOR UNKNOWN INDICATION
  12. HEPARIN SODIUM. [Suspect]
     Active Substance: HEPARIN SODIUM
     Indication: THROMBOSIS
     Route: 058
  13. EPINEPHRINE. [Suspect]
     Active Substance: EPINEPHRINE
     Indication: PULSE ABSENT
  14. MAGNESIUM SULFATE. [Concomitant]
     Active Substance: MAGNESIUM SULFATE
     Indication: PRODUCT USED FOR UNKNOWN INDICATION
     Route: 030
  15. IRON SULFATE [Concomitant]
     Active Substance: FERROUS SULFATE ANHYDROUS
     Indication: PRODUCT USED FOR UNKNOWN INDICATION
  16. INSULIN [Concomitant]
     Active Substance: INSULIN NOS
     Indication: PRODUCT USED FOR UNKNOWN INDICATION
  17. DOPAMINE [Suspect]
     Active Substance: DOPAMINE HYDROCHLORIDE
     Indication: CARDIOMYOPATHY
  18. VASOPRESSIN. [Suspect]
     Active Substance: VASOPRESSIN
  19. BETAMETHASONE. [Concomitant]
     Active Substance: BETAMETHASONE
     Indication: PRODUCT USED FOR UNKNOWN INDICATION
     Route: 030
  20. RINGERS SOLUTION [Concomitant]
     Active Substance: CALCIUM CHLORIDE\POTASSIUM CHLORIDE\SODIUM CHLORIDE
     Indication: PRODUCT USED FOR UNKNOWN INDICATION
     Route: 042
  21. DOPAMINE [Suspect]
     Active Substance: DOPAMINE HYDROCHLORIDE
     Indication: VAGINAL HAEMORRHAGE

REACTIONS (9)
  - Ventricular arrhythmia [Unknown]
  - Haemolysis [Unknown]
  - Maternal exposure during pregnancy [Unknown]
  - Vaginal haemorrhage [Unknown]
  - Normal newborn [Unknown]
  - Unresponsive to stimuli [Unknown]
  - Cardiomyopathy [Unknown]
  - Pulse absent [Unknown]
  - Cardiac arrest [Unknown]
